FAERS Safety Report 22275896 (Version 7)
Quarter: 2024Q2

REPORT INFORMATION
  Report Type: Spontaneous
  Country: US (occurrence: US)
  Receive Date: 20230502
  Receipt Date: 20240613
  Transmission Date: 20240715
  Serious: Yes (Other)
  Sender: FDA-Public Use
  Company Number: US-BRISTOL-MYERS SQUIBB COMPANY-2023-061776

PATIENT
  Age: 83 Year
  Sex: Female
  Weight: 62.6 kg

DRUGS (2)
  1. REVLIMID [Suspect]
     Active Substance: LENALIDOMIDE
     Indication: Plasma cell myeloma
     Dosage: FREQUENCY: 1 QD 21D ON 7D OFF/1 CAPSULE DAILY FOR 21 DAYS, THEN 7 DAYS OFF
     Route: 048
     Dates: start: 20230126
  2. REVLIMID [Suspect]
     Active Substance: LENALIDOMIDE
     Dosage: 3WKSON,1WKOFF
     Route: 048

REACTIONS (7)
  - Balance disorder [Unknown]
  - Abdominal pain upper [Unknown]
  - Dyspepsia [Unknown]
  - Fatigue [Unknown]
  - Nasopharyngitis [Recovered/Resolved]
  - Neuropathy peripheral [Recovering/Resolving]
  - Upper respiratory tract infection [Recovered/Resolved]
